FAERS Safety Report 5703864-4 (Version None)
Quarter: 2008Q2

REPORT INFORMATION
  Report Type: 
  Country: None (occurrence: None)
  Receive Date: 20080414
  Receipt Date: 20080402
  Transmission Date: 20081010
  Serious: Yes (Hospitalization, Other)
  Sender: FDA-Public Use
  Company Number: US-ELI_LILLY_AND_COMPANY-US200804000585

PATIENT
  Sex: Female

DRUGS (5)
  1. ZYPREXA [Suspect]
     Indication: MENTAL RETARDATION
  2. TOPAMAX [Concomitant]
  3. DEPAKOTE [Concomitant]
  4. GEODON [Concomitant]
  5. ABILIFY [Concomitant]

REACTIONS (3)
  - AMMONIA INCREASED [None]
  - CONVULSION [None]
  - HOSPITALISATION [None]
